FAERS Safety Report 13362923 (Version 6)
Quarter: 2019Q3

REPORT INFORMATION
  Report Type: Report from Study
  Country: US (occurrence: US)
  Receive Date: 20170323
  Receipt Date: 20190920
  Transmission Date: 20191004
  Serious: Yes (Other)
  Sender: FDA-Public Use
  Company Number: PHHY2017US043990

PATIENT
  Age: 52 Year
  Sex: Female

DRUGS (2)
  1. CYMBALTA [Concomitant]
     Active Substance: DULOXETINE HYDROCHLORIDE
     Indication: DEPRESSION
     Dosage: UNK
     Route: 065
     Dates: start: 20160623
  2. GILENYA [Suspect]
     Active Substance: FINGOLIMOD HYDROCHLORIDE
     Indication: MULTIPLE SCLEROSIS
     Dosage: UNK, QD
     Route: 048

REACTIONS (20)
  - Diarrhoea [Recovered/Resolved]
  - Asthma [Recovered/Resolved]
  - Actinic keratosis [Unknown]
  - Benign neoplasm of skin [Recovered/Resolved]
  - Affect lability [Not Recovered/Not Resolved]
  - Demyelinating polyneuropathy [Not Recovered/Not Resolved]
  - Abdominal pain [Recovered/Resolved]
  - Anxiety [Not Recovered/Not Resolved]
  - Bronchitis [Recovered/Resolved]
  - Solar lentigo [Unknown]
  - Epilepsy [Not Recovered/Not Resolved]
  - Lower respiratory tract infection [Recovered/Resolved]
  - Seizure [Recovered/Resolved]
  - Temperature intolerance [Not Recovered/Not Resolved]
  - Productive cough [Recovered/Resolved]
  - Pain in extremity [Not Recovered/Not Resolved]
  - Cognitive disorder [Not Recovered/Not Resolved]
  - Lymphocyte count decreased [Unknown]
  - Fatigue [Recovered/Resolved]
  - Urinary incontinence [Not Recovered/Not Resolved]

NARRATIVE: CASE EVENT DATE: 20160617
